FAERS Safety Report 18521988 (Version 1)
Quarter: 2020Q4

REPORT INFORMATION
  Report Type: Spontaneous
  Country: GB (occurrence: GB)
  Receive Date: 20201119
  Receipt Date: 20201119
  Transmission Date: 20210114
  Serious: Yes (Other)
  Sender: FDA-Public Use
  Company Number: GB-TEVA-2020-GB-1849565

PATIENT
  Age: 70 Year
  Sex: Male
  Weight: 101 kg

DRUGS (11)
  1. METFORMIN [Concomitant]
     Active Substance: METFORMIN HYDROCHLORIDE
     Dosage: WITH MAIN MEAL,1DF
     Dates: start: 20200428
  2. AMOXICILLIN. [Concomitant]
     Active Substance: AMOXICILLIN
     Dosage: PLEASE COMPLETE THE COURSE,3DF
     Dates: start: 20200827, end: 20200903
  3. E45 [Concomitant]
     Active Substance: LANOLIN\LIGHT MINERAL OIL\PARAFFIN
     Dosage: APPLY,1DF
     Dates: start: 20201001
  4. HYDROCORTISONE. [Suspect]
     Active Substance: HYDROCORTISONE
     Route: 061
     Dates: start: 20200922
  5. HYDROCORTISONE. [Suspect]
     Active Substance: HYDROCORTISONE
     Dosage: APPLY,UNIT DOSE 2DF
     Dates: start: 20200914, end: 20200928
  6. MICONAZOLE. [Suspect]
     Active Substance: MICONAZOLE
     Route: 061
     Dates: start: 20200922
  7. FEXOFENADINE [Concomitant]
     Active Substance: FEXOFENADINE HYDROCHLORIDE
     Dosage: 1DF
     Dates: start: 20200922, end: 20201022
  8. AMLODIPINE [Concomitant]
     Active Substance: AMLODIPINE BESYLATE
     Dosage: 1 DOSAGE FORMS DAILY; IN THE MORNING
     Dates: start: 20200428
  9. FLUCONAZOLE. [Concomitant]
     Active Substance: FLUCONAZOLE
     Dosage: 1DF
     Dates: start: 20201001, end: 20201015
  10. ATORVASTATIN [Concomitant]
     Active Substance: ATORVASTATIN
     Dosage: 1 DOSAGE FORMS DAILY; AT NIGHT
     Dates: start: 20200428
  11. DOXAZOSIN [Concomitant]
     Active Substance: DOXAZOSIN MESYLATE
     Dosage: 3DF
     Dates: start: 20200428

REACTIONS (1)
  - Application site rash [Recovered/Resolved]

NARRATIVE: CASE EVENT DATE: 20201023
